FAERS Safety Report 7324676-4 (Version None)
Quarter: 2011Q1

REPORT INFORMATION
  Report Type: 
  Country: None (occurrence: None)
  Receive Date: 20110301
  Receipt Date: 20110214
  Transmission Date: 20110831
  Serious: Yes (Other)
  Sender: FDA-Public Use
  Company Number: NO-TEVA-268261ISR

PATIENT
  Age: 40 Year
  Sex: Female

DRUGS (2)
  1. ETANERCEPT [Suspect]
  2. METHOTREXATE [Suspect]

REACTIONS (1)
  - SCLERITIS [None]
